FAERS Safety Report 8974599 (Version 1)
Quarter: 2012Q4

REPORT INFORMATION
  Report Type: 
  Country: JP (occurrence: JP)
  Receive Date: 20121220
  Receipt Date: 20121220
  Transmission Date: 20130627
  Serious: Yes (Hospitalization)
  Sender: FDA-Public Use
  Company Number: JP-MERCK-1212JPN004145

PATIENT
  Age: 74 Year
  Sex: Female

DRUGS (7)
  1. BONALON [Suspect]
     Indication: OSTEOPOROSIS
     Dosage: 35 mg, qw
     Route: 048
     Dates: start: 200804, end: 201008
  2. PREDONINE [Suspect]
     Indication: RHEUMATOID ARTHRITIS
     Dosage: daily dose: 5 mg
     Route: 048
     Dates: start: 200804
  3. METHOTREXATE [Concomitant]
     Indication: RHEUMATOID ARTHRITIS
     Dosage: UNK
     Route: 048
     Dates: start: 200804
  4. NIFEDIPINE [Concomitant]
     Indication: HYPERTENSION
     Dosage: 40 mg, qd
     Route: 048
  5. GLIMEPIRIDE [Concomitant]
     Indication: DIABETES MELLITUS
     Dosage: 4 mg, qd
     Route: 048
  6. PIOGLITAZONE HYDROCHLORIDE [Concomitant]
     Indication: DIABETES MELLITUS
     Dosage: 30 mg, qd
     Route: 048
  7. SITAGLIPTIN PHOSPHATE [Concomitant]
     Indication: DIABETES MELLITUS
     Dosage: 50 mg, qd
     Route: 048

REACTIONS (4)
  - Osteomyelitis [Recovering/Resolving]
  - Osteomyelitis [Recovering/Resolving]
  - Osteonecrosis of jaw [Recovering/Resolving]
  - Osteonecrosis of jaw [Recovering/Resolving]
